FAERS Safety Report 19724162 (Version 1)
Quarter: 2021Q3

REPORT INFORMATION
  Report Type: Report from Study
  Country: GB (occurrence: GB)
  Receive Date: 20210819
  Receipt Date: 20210819
  Transmission Date: 20211014
  Serious: Yes (Other)
  Sender: FDA-Public Use
  Company Number: GB-MYLANLABS-2021M1052854

PATIENT
  Age: 64 Year
  Sex: Female

DRUGS (26)
  1. DEXAMETHASONE. [Concomitant]
     Active Substance: DEXAMETHASONE
     Dosage: 8 MILLIGRAM
     Route: 048
     Dates: start: 20170323, end: 20170622
  2. DEXAMETHASONE. [Concomitant]
     Active Substance: DEXAMETHASONE
     Dosage: 4 MILLIGRAM
     Route: 048
     Dates: start: 20170324, end: 20170715
  3. FLUCONAZOLE. [Concomitant]
     Active Substance: FLUCONAZOLE
     Dosage: 50 MILLIGRAM, QD
     Route: 048
     Dates: start: 20170530, end: 20170620
  4. GELCLAIR                           /01702001/ [Concomitant]
     Dosage: UNK UNK, TID, DOSE 1 OTHER
     Route: 048
     Dates: start: 20170414
  5. ZEROBASE                           /00103901/ [Concomitant]
     Dosage: UNK UNK, PRN (EMOLLIENT FOR RADIOTHERAPY TREATED SKIN)
     Route: 061
     Dates: start: 20170906
  6. TAMOXIFEN [Suspect]
     Active Substance: TAMOXIFEN
     Indication: BREAST CANCER METASTATIC
     Dosage: 20 MILLIGRAM, QD
     Route: 048
     Dates: start: 20170824
  7. ADCAL                              /00056901/ [Concomitant]
     Active Substance: CARBAZOCHROME
     Dosage: 1 DOSAGE FORM, QD
     Route: 048
     Dates: start: 20180801
  8. BENZYDAMINE [Concomitant]
     Active Substance: BENZYDAMINE
     Dosage: 10 MILLILITER, 1.5?3 HOURLY
     Route: 061
     Dates: start: 20170530, end: 20170802
  9. DOMPERIDONE [Concomitant]
     Active Substance: DOMPERIDONE
     Dosage: 10 MILLIGRAM, TID
     Route: 048
     Dates: start: 20180801
  10. OMEPRAZOLE. [Concomitant]
     Active Substance: OMEPRAZOLE
     Dosage: 20 MILLIGRAM, QD
     Route: 048
     Dates: start: 20190415
  11. SARS?COV?2 VIRUS [Concomitant]
     Active Substance: SARS-COV-2
     Dosage: UNK UNK, QD
     Route: 030
     Dates: start: 20210206
  12. DEXAMETHASONE. [Concomitant]
     Active Substance: DEXAMETHASONE
     Dosage: 2 MILLIGRAM
     Route: 048
     Dates: start: 20170324, end: 20170716
  13. DOCETAXEL. [Suspect]
     Active Substance: DOCETAXEL
     Indication: BREAST CANCER METASTATIC
     Dosage: 200 MILLIGRAM, Q3W
     Route: 042
     Dates: start: 20170324
  14. DOCETAXEL. [Suspect]
     Active Substance: DOCETAXEL
     Dosage: 150 MILLIGRAM, Q3W
     Route: 042
     Dates: start: 20170712, end: 20170712
  15. TRASTUZUMAB. [Suspect]
     Active Substance: TRASTUZUMAB
     Indication: BREAST CANCER METASTATIC
     Dosage: 600 MILLIGRAM, Q3W
     Route: 058
     Dates: start: 20170324
  16. LOPERAMIDE [Concomitant]
     Active Substance: LOPERAMIDE
     Dosage: 2 MILLIGRAM, PRN
     Route: 048
     Dates: start: 20170414
  17. ONDANSETRON [Concomitant]
     Active Substance: ONDANSETRON
     Dosage: 8 MILLIGRAM
     Route: 042
     Dates: start: 20170324, end: 20170721
  18. SARS?COV?2 VIRUS [Concomitant]
     Active Substance: SARS-COV-2
     Dosage: UNK UNK, QD
     Route: 030
     Dates: start: 20210417
  19. PROCHLORPERAZINE. [Concomitant]
     Active Substance: PROCHLORPERAZINE
     Dosage: 5 MILLIGRAM, PRN
     Route: 048
     Dates: start: 20190129, end: 202102
  20. TRIMETHOPRIM. [Concomitant]
     Active Substance: TRIMETHOPRIM
     Dosage: 200 MILLIGRAM, BID
     Route: 048
     Dates: start: 20200723, end: 20200726
  21. SERTRALINE [Concomitant]
     Active Substance: SERTRALINE HYDROCHLORIDE
     Dosage: 50 MILLIGRAM, QD
     Route: 048
     Dates: start: 20190415
  22. AMOXICILLIN. [Concomitant]
     Active Substance: AMOXICILLIN
     Dosage: 500 MILLIGRAM, TID
     Route: 048
     Dates: start: 20190314
  23. PARACETAMOL [Concomitant]
     Active Substance: ACETAMINOPHEN
     Dosage: 1 GRAM, 4?6 HOURLY AS REQUIRED
     Route: 048
     Dates: start: 20171011
  24. TRIMETHOPRIM. [Concomitant]
     Active Substance: TRIMETHOPRIM
     Dosage: 200 MILLIGRAM, BID
     Route: 048
     Dates: start: 20200826, end: 20200901
  25. DOCETAXEL. [Suspect]
     Active Substance: DOCETAXEL
     Dosage: 180 MILLIGRAM, BIWEEKLY
     Route: 042
     Dates: start: 20170621, end: 20170711
  26. COD LIVER OIL [Concomitant]
     Active Substance: COD LIVER OIL
     Dosage: UNK UNK, QD (DOSE 1 UNKNOWN)
     Route: 048
     Dates: start: 20171022

REACTIONS (5)
  - Neuropathy peripheral [Recovered/Resolved]
  - Fatigue [Recovered/Resolved]
  - Mucosal inflammation [Recovered/Resolved]
  - Dyspnoea [Recovered/Resolved]
  - Diarrhoea [Recovered/Resolved with Sequelae]

NARRATIVE: CASE EVENT DATE: 20170607
